FAERS Safety Report 9781653 (Version 1)
Quarter: 2013Q4

REPORT INFORMATION
  Report Type: Spontaneous
  Country: US (occurrence: US)
  Receive Date: 20131224
  Receipt Date: 20131224
  Transmission Date: 20140711
  Serious: Yes (Other)
  Sender: FDA-Public Use
  Company Number: CHPA2013US018676

PATIENT
  Age: 75 Year
  Sex: Female

DRUGS (3)
  1. KERI SENSITIVE SKIN [Suspect]
     Indication: SKIN SENSITISATION
     Dosage: UNK, QD
     Route: 061
     Dates: start: 201212, end: 201304
  2. KERI ORIGINAL [Suspect]
     Indication: SKIN SENSITISATION
     Dosage: UNK, PRN
     Route: 061
     Dates: start: 201304
  3. KERI ORIGINAL [Suspect]
     Indication: OFF LABEL USE

REACTIONS (2)
  - Pruritus [Not Recovered/Not Resolved]
  - Colostomy [Recovered/Resolved]
